FAERS Safety Report 6759844-3 (Version None)
Quarter: 2010Q2

REPORT INFORMATION
  Report Type: 
  Country: None (occurrence: None)
  Receive Date: 20100608
  Receipt Date: 20100525
  Transmission Date: 20101027
  Serious: Yes (Other)
  Sender: FDA-Public Use
  Company Number: PHHY2010GB25778

PATIENT

DRUGS (1)
  1. ALISKIREN [Suspect]

REACTIONS (3)
  - CIRCULATORY COLLAPSE [None]
  - HYPOTENSION [None]
  - PRESYNCOPE [None]
